FAERS Safety Report 24806300 (Version 1)
Quarter: 2025Q1

REPORT INFORMATION
  Report Type: Spontaneous
  Country: US (occurrence: US)
  Receive Date: 20250103
  Receipt Date: 20250103
  Transmission Date: 20250409
  Serious: No
  Sender: MERCK
  Company Number: US-009507513-2412USA004547

PATIENT
  Age: 70 Year
  Sex: Female

DRUGS (3)
  1. KEYTRUDA [Suspect]
     Active Substance: PEMBROLIZUMAB
     Indication: Triple negative breast cancer
     Dosage: EVERY 3 WEEKS
     Route: 042
     Dates: start: 20240828
  2. CARBOPLATIN [Suspect]
     Active Substance: CARBOPLATIN
  3. PIROXICAM [Suspect]
     Active Substance: PIROXICAM

REACTIONS (3)
  - Arthralgia [Not Recovered/Not Resolved]
  - Urinary tract infection [Unknown]
  - Bone loss [Unknown]

NARRATIVE: CASE EVENT DATE: 20240101
